FAERS Safety Report 8596392-2 (Version None)
Quarter: 2012Q3

REPORT INFORMATION
  Report Type: 
  Country: None (occurrence: None)
  Receive Date: 20120815
  Receipt Date: 20120806
  Transmission Date: 20120928
  Serious: Yes (Other)
  Sender: FDA-Public Use
  Company Number: GB-CELGENEUS-167-21880-12080745

PATIENT
  Sex: Female

DRUGS (1)
  1. REVLIMID [Suspect]
     Route: 048
     Dates: end: 20120531

REACTIONS (9)
  - OEDEMA PERIPHERAL [None]
  - SPINAL COLUMN INJURY [None]
  - LOSS OF CONSCIOUSNESS [None]
  - SKELETAL INJURY [None]
  - DEHYDRATION [None]
  - RASH GENERALISED [None]
  - DYSPHONIA [None]
  - HALLUCINATION [None]
  - PAIN [None]
